FAERS Safety Report 11291943 (Version 1)
Quarter: 2015Q3

REPORT INFORMATION
  Report Type: Spontaneous
  Country: NL (occurrence: NL)
  Receive Date: 20150722
  Receipt Date: 20150722
  Transmission Date: 20151125
  Serious: Yes (Hospitalization)
  Sender: FDA-Public Use
  Company Number: NL-TEVA-577080ISR

PATIENT
  Age: 51 Year
  Sex: Female
  Weight: 103 kg

DRUGS (3)
  1. OXALIPLATINE INFUUS [Suspect]
     Active Substance: OXALIPLATIN
     Indication: COLON CANCER
     Dosage: ONCE EVERY THREE WEEKS
     Route: 042
     Dates: start: 20150217
  2. ETHINYLESTRADIOL/DESOGESTREL TABLET 30/150UG [Concomitant]
     Dosage: ONCE DAILY ONE PIECE
     Route: 048
     Dates: start: 2013
  3. OXIS TURBUHALER INHALPDR  6MCG/DO 60DO [Concomitant]
     Dosage: TWICE DAILY ONE PIECE
     Route: 055
     Dates: start: 2013

REACTIONS (5)
  - Stridor [Recovered/Resolved]
  - Dyspnoea [Recovered/Resolved]
  - Speech disorder [Recovered/Resolved]
  - Hypotension [Recovered/Resolved]
  - Musculoskeletal stiffness [Recovered/Resolved]

NARRATIVE: CASE EVENT DATE: 20150217
